FAERS Safety Report 9930155 (Version 2)
Quarter: 2014Q1

REPORT INFORMATION
  Report Type: Report from Study
  Country: US (occurrence: US)
  Receive Date: 20140227
  Receipt Date: 20140321
  Transmission Date: 20141002
  Serious: Yes (Other)
  Sender: FDA-Public Use
  Company Number: PHEH2014US003746

PATIENT
  Age: 69 Year
  Sex: Female

DRUGS (10)
  1. DIOVAN [Suspect]
     Indication: HYPERTENSION
     Dosage: UNK UKN, UNK
     Route: 048
     Dates: start: 20131009
  2. LISINOPRIL [Suspect]
     Dosage: UNK UKN, UNK
  3. QUINAPRIL [Suspect]
     Dosage: UNK UKN, UNK
  4. NORVASC [Suspect]
     Dosage: UNK UKN, UNK
  5. TEKTURNA [Concomitant]
     Dosage: 300 MG, QD
     Dates: start: 201310
  6. ASPIRIN [Concomitant]
     Dosage: UNK UKN, UNK
  7. SIMVASTATIN [Concomitant]
     Dosage: UNK UKN, UNK
  8. BYSTOLIC [Concomitant]
     Dosage: UNK UKN, UNK
  9. CLONIDINE [Concomitant]
     Dosage: UNK UKN, UNK
  10. HYDROCHOROTHIAZIDE [Concomitant]
     Dosage: UNK UKN, UNK

REACTIONS (6)
  - Ischaemic stroke [Recovered/Resolved with Sequelae]
  - Sensory loss [Recovered/Resolved with Sequelae]
  - Balance disorder [Recovered/Resolved with Sequelae]
  - Coordination abnormal [Recovered/Resolved with Sequelae]
  - Dysarthria [Recovered/Resolved with Sequelae]
  - Blood pressure increased [Recovered/Resolved with Sequelae]
